FAERS Safety Report 6963811 (Version 4)
Quarter: 2014Q3

REPORT INFORMATION
  Report Type: Spontaneous
  Country: US (occurrence: None)
  Receive Date: 20090324
  Receipt Date: 20140912
  Transmission Date: 20150326
  Serious: Yes (Other)
  Sender: FDA-Public Use
  Company Number: 2009S1004064

PATIENT
  Age: 38 Year
  Sex: Female
  Weight: 69 kg

DRUGS (13)
  1. PHOSPHO-SODA [Suspect]
     Active Substance: SODIUM PHOSPHATE, DIBASIC\SODIUM PHOSPHATE, MONOBASIC
     Indication: COLONOSCOPY
     Dosage: 90 ML; TOTAL; PO
     Route: 048
     Dates: start: 20080930, end: 20081001
  2. SKELAXIN (METAXALONE) [Concomitant]
  3. LYRICA [Concomitant]
     Active Substance: PREGABALIN
  4. ALBUTEROL. [Concomitant]
     Active Substance: ALBUTEROL
  5. CLONAZEPAM. [Concomitant]
     Active Substance: CLONAZEPAM
  6. ONDANSETRON. [Concomitant]
     Active Substance: ONDANSETRON
  7. CYMBALTA [Concomitant]
     Active Substance: DULOXETINE HYDROCHLORIDE
  8. MORPHINE (MORPHINE) [Concomitant]
  9. SEROQUEL [Concomitant]
     Active Substance: QUETIAPINE FUMARATE
  10. COUMADIN [Concomitant]
     Active Substance: WARFARIN SODIUM
  11. FLEET [Suspect]
     Active Substance: BISACODYL\GLYCERIN\MINERAL OIL\SODIUM PHOSPHATE, DIBASIC\SODIUM PHOSPHATE, MONOBASIC
     Indication: COLONOSCOPY
  12. TYLENOL [Concomitant]
     Active Substance: ACETAMINOPHEN
  13. TRAZODONE [Concomitant]
     Active Substance: TRAZODONE HYDROCHLORIDE

REACTIONS (12)
  - Dehydration [None]
  - Haemoglobin decreased [None]
  - Tubulointerstitial nephritis [None]
  - Vomiting [None]
  - Abdominal pain [None]
  - Arthralgia [None]
  - Renal failure chronic [None]
  - Acute phosphate nephropathy [None]
  - Diarrhoea [None]
  - Nephrocalcinosis [None]
  - Nausea [None]
  - Dizziness [None]

NARRATIVE: CASE EVENT DATE: 20081216
